FAERS Safety Report 8958744 (Version 1)
Quarter: 2012Q4

REPORT INFORMATION
  Report Type: 
  Country: US (occurrence: None)
  Receive Date: 20121206
  Receipt Date: 20121206
  Transmission Date: 20130627
  Serious: Yes (Hospitalization)
  Sender: FDA-Public Use
  Company Number: None

PATIENT
  Sex: Male
  Weight: 86 kg

DRUGS (2)
  1. CARBOPLATIN [Suspect]
     Dates: end: 20121031
  2. PACLITAXEL (TAXOL) [Suspect]
     Dates: end: 20121031

REACTIONS (1)
  - Ileus [None]
